FAERS Safety Report 15555398 (Version 1)
Quarter: 2018Q4

REPORT INFORMATION
  Report Type: Spontaneous
  Country: US (occurrence: US)
  Receive Date: 20181023
  Receipt Date: 20181023
  Transmission Date: 20190205
  Serious: No
  Sender: FDA-Public Use
  Company Number: None

PATIENT
  Age: 56 Year

DRUGS (9)
  1. PRILOSEC [Concomitant]
     Active Substance: OMEPRAZOLE MAGNESIUM
  2. WARFARIN [Suspect]
     Active Substance: WARFARIN
     Indication: ATRIAL FIBRILLATION
     Route: 048
  3. LEXAPRO [Concomitant]
     Active Substance: ESCITALOPRAM OXALATE
  4. GLUCOPHAGE [Concomitant]
     Active Substance: METFORMIN HYDROCHLORIDE
  5. TAMBOCOR [Concomitant]
     Active Substance: FLECAINIDE ACETATE
  6. SYNTHROID [Suspect]
     Active Substance: LEVOTHYROXINE SODIUM
  7. NICODERM CQ [Concomitant]
     Active Substance: NICOTINE
  8. LOPRESSOR [Suspect]
     Active Substance: METOPROLOL TARTRATE
  9. ZOFRAN [Concomitant]
     Active Substance: ONDANSETRON HYDROCHLORIDE

REACTIONS (4)
  - Haematemesis [None]
  - International normalised ratio increased [None]
  - Hypophagia [None]
  - Hepatic function abnormal [None]

NARRATIVE: CASE EVENT DATE: 20180721
